FAERS Safety Report 7902035-0 (Version None)
Quarter: 2011Q4

REPORT INFORMATION
  Report Type: 
  Country: None (occurrence: None)
  Receive Date: 20111108
  Receipt Date: 20111028
  Transmission Date: 20120403
  Serious: Yes (Congenital Anomaly)
  Sender: FDA-Public Use
  Company Number: US-GLAXOSMITHKLINE-A0950724A

PATIENT
  Sex: Male
  Weight: 3.7 kg

DRUGS (2)
  1. PAXIL [Suspect]
     Indication: PRODUCT USED FOR UNKNOWN INDICATION
     Dosage: 30MG UNKNOWN
     Route: 064
  2. VITAMIN TAB [Concomitant]

REACTIONS (4)
  - FOETAL EXPOSURE DURING PREGNANCY [None]
  - VENTRICULAR SEPTAL DEFECT [None]
  - HYDRONEPHROSIS [None]
  - ATRIAL SEPTAL DEFECT [None]
